FAERS Safety Report 6056964-6 (Version None)
Quarter: 2009Q1

REPORT INFORMATION
  Report Type: 
  Country: None (occurrence: None)
  Receive Date: 20090126
  Receipt Date: 20090126
  Transmission Date: 20090719
  Serious: Yes (Hospitalization)
  Sender: FDA-Public Use
  Company Number: None

PATIENT
  Age: 42 Year
  Sex: Female

DRUGS (2)
  1. IMITREX [Suspect]
     Indication: MIGRAINE
     Dosage: 20 MG  IN
  2. IMITREX [Suspect]
     Indication: MIGRAINE
     Dosage: 20 MG QID IN

REACTIONS (1)
  - CHEST PAIN [None]
